FAERS Safety Report 14805949 (Version 2)
Quarter: 2018Q3

REPORT INFORMATION
  Report Type: Report from Study
  Country: CA (occurrence: CA)
  Receive Date: 20180425
  Receipt Date: 20180730
  Transmission Date: 20181010
  Serious: Yes (Hospitalization)
  Sender: FDA-Public Use
  Company Number: CA-JNJFOC-20180421307

PATIENT
  Age: 30 Year
  Sex: Female

DRUGS (1)
  1. STELARA [Suspect]
     Active Substance: USTEKINUMAB
     Indication: LUPUS-LIKE SYNDROME
     Route: 058
     Dates: start: 20180222

REACTIONS (1)
  - Systemic lupus erythematosus [Recovering/Resolving]

NARRATIVE: CASE EVENT DATE: 20180720
